FAERS Safety Report 7610974-3 (Version None)
Quarter: 2011Q3

REPORT INFORMATION
  Report Type: 
  Country: None (occurrence: None)
  Receive Date: 20110715
  Receipt Date: 20110706
  Transmission Date: 20111222
  Serious: Yes (Hospitalization, Other)
  Sender: FDA-Public Use
  Company Number: US-BAYER-2011-047632

PATIENT
  Age: 14 Year
  Sex: Female

DRUGS (1)
  1. ULTRAVIST 150 [Suspect]
     Indication: COMPUTERISED TOMOGRAM HEAD
     Dosage: 50 ML, ONCE
     Route: 042
     Dates: start: 20110526, end: 20110526

REACTIONS (5)
  - URTICARIA [None]
  - DYSPNOEA [None]
  - VOMITING [None]
  - SWELLING FACE [None]
  - COUGH [None]
